FAERS Safety Report 4811054-2 (Version None)
Quarter: 2005Q4

REPORT INFORMATION
  Report Type: 
  Country: None (occurrence: None)
  Receive Date: 20051025
  Receipt Date: 20051014
  Transmission Date: 20060501
  Serious: Yes (Other)
  Sender: FDA-Public Use
  Company Number: 2005134638

PATIENT
  Age: 72 Year
  Sex: Male
  Weight: 83.0083 kg

DRUGS (10)
  1. GLUCOTROL [Suspect]
     Indication: DIABETES MELLITUS NON-INSULIN-DEPENDENT
     Dosage: 1 IN 1 D, ORAL
     Route: 048
     Dates: start: 19980101
  2. SOLU-CORTEF [Suspect]
     Indication: PREMEDICATION
     Dosage: INTRAVENOUS
     Route: 042
     Dates: start: 20050101
  3. FLUDARA [Suspect]
     Indication: CHRONIC LYMPHOCYTIC LEUKAEMIA
     Dosage: INTRAVENOUS
     Route: 042
     Dates: start: 20050101
  4. WARFARIN SODIUM [Concomitant]
  5. BACTRIM [Concomitant]
  6. ALLOPURINOL [Concomitant]
  7. ACYCLOVIR [Concomitant]
  8. GLUCOSAMINE W/CHONDROITIN SULFATES (ASCORBIC ACID, CHONDROITIN SULFATE [Concomitant]
  9. RITUXAN [Concomitant]
  10. ALL OTHER THERAPEUTIC PRODUCTS (ALL OTHER THERAPEUTIC PRODUCTS) [Concomitant]

REACTIONS (5)
  - CHRONIC LYMPHOCYTIC LEUKAEMIA [None]
  - DIABETES MELLITUS INADEQUATE CONTROL [None]
  - DRUG EFFECT DECREASED [None]
  - DRUG INEFFECTIVE [None]
  - PLATELET COUNT DECREASED [None]
